FAERS Safety Report 11164445 (Version 5)
Quarter: 2015Q3

REPORT INFORMATION
  Report Type: Spontaneous
  Country: JP (occurrence: JP)
  Receive Date: 20150604
  Receipt Date: 20150909
  Transmission Date: 20151125
  Serious: Yes (Death, Other)
  Sender: FDA-Public Use
  Company Number: JP-GLAXOSMITHKLINE-JP2015JPN074177

PATIENT
  Age: 57 Year
  Sex: Female

DRUGS (1)
  1. VOTRIENT [Suspect]
     Active Substance: PAZOPANIB HYDROCHLORIDE
     Indication: BREAST ANGIOSARCOMA METASTATIC
     Dosage: 200 MG, QD
     Route: 048

REACTIONS (5)
  - Breast angiosarcoma metastatic [Unknown]
  - Dysgeusia [Unknown]
  - Sepsis [Unknown]
  - General physical health deterioration [Fatal]
  - Anaemia [Unknown]
